FAERS Safety Report 5600129-6 (Version None)
Quarter: 2008Q1

REPORT INFORMATION
  Report Type: 
  Country: None (occurrence: None)
  Receive Date: 20080123
  Receipt Date: 20080114
  Transmission Date: 20080703
  Serious: Yes (Hospitalization)
  Sender: FDA-Public Use
  Company Number: B0504220A

PATIENT
  Age: 30 Year
  Sex: Female
  Weight: 55 kg

DRUGS (2)
  1. ZYBAN [Suspect]
     Indication: NICOTINE DEPENDENCE
     Dosage: 150MG PER DAY
     Route: 048
     Dates: start: 20071125, end: 20071128
  2. ZYPREXA [Suspect]
     Indication: SCHIZOPHRENIA
     Dosage: 5MG PER DAY
     Route: 048
     Dates: start: 20010101

REACTIONS (4)
  - DRUG INTERACTION [None]
  - LEGAL PROBLEM [None]
  - MANIA [None]
  - PSYCHIATRIC DECOMPENSATION [None]
